FAERS Safety Report 20311716 (Version 9)
Quarter: 2022Q2

REPORT INFORMATION
  Report Type: Report from Study
  Country: US (occurrence: US)
  Receive Date: 20220108
  Receipt Date: 20220518
  Transmission Date: 20220721
  Serious: Yes (Hospitalization, Other)
  Sender: FDA-Public Use
  Company Number: US-JNJFOC-20211206073

PATIENT
  Age: 79 Year
  Sex: Female
  Weight: 82.3 kg

DRUGS (11)
  1. MACITENTAN [Suspect]
     Active Substance: MACITENTAN
     Indication: Pulmonary arterial hypertension
     Route: 048
     Dates: start: 20211123, end: 20211201
  2. MACITENTAN [Suspect]
     Active Substance: MACITENTAN
     Route: 048
     Dates: start: 20211215
  3. MACITENTAN [Suspect]
     Active Substance: MACITENTAN
     Route: 048
     Dates: start: 20211221
  4. MACITENTAN [Suspect]
     Active Substance: MACITENTAN
     Route: 048
  5. MACITENTAN [Suspect]
     Active Substance: MACITENTAN
     Route: 048
     Dates: start: 20211122
  6. MACITENTAN [Suspect]
     Active Substance: MACITENTAN
     Route: 048
     Dates: start: 202111
  7. MILK OF MAGNESIA [Suspect]
     Active Substance: MAGNESIUM HYDROXIDE
     Indication: Constipation
     Route: 065
  8. ELIQUIS [Concomitant]
     Active Substance: APIXABAN
  9. ESBRIET [Concomitant]
     Active Substance: PIRFENIDONE
  10. AMLODIPINE [Concomitant]
     Active Substance: AMLODIPINE BESYLATE
  11. LOSARTAN [Concomitant]
     Active Substance: LOSARTAN

REACTIONS (22)
  - Hypotension [Recovering/Resolving]
  - Dyspnoea [Not Recovered/Not Resolved]
  - White blood cell count increased [Recovering/Resolving]
  - Pulmonary arterial hypertension [Unknown]
  - Red blood cell count decreased [Recovering/Resolving]
  - Fluid retention [Recovering/Resolving]
  - Hypothyroidism [Not Recovered/Not Resolved]
  - Hypoxia [Not Recovered/Not Resolved]
  - Pulmonary fibrosis [Recovering/Resolving]
  - Peripheral swelling [Not Recovered/Not Resolved]
  - Bronchitis [Recovered/Resolved]
  - Weight increased [Unknown]
  - Constipation [Recovering/Resolving]
  - Diarrhoea [Unknown]
  - Renal disorder [Recovering/Resolving]
  - Loss of personal independence in daily activities [Unknown]
  - Abdominal pain upper [Not Recovered/Not Resolved]
  - Upper respiratory tract infection [Recovering/Resolving]
  - Drug ineffective [Not Recovered/Not Resolved]
  - Anaemia [Not Recovered/Not Resolved]
  - Incorrect dose administered [Unknown]
  - Off label use [Unknown]

NARRATIVE: CASE EVENT DATE: 20211125
